FAERS Safety Report 4309899-0 (Version None)
Quarter: 2004Q1

REPORT INFORMATION
  Report Type: 
  Country: None (occurrence: None)
  Receive Date: 20040303
  Receipt Date: 20040120
  Transmission Date: 20041129
  Serious: No
  Sender: FDA-Public Use
  Company Number: US-BRISTOL-MYERS SQUIBB COMPANY-12483228

PATIENT
  Sex: Male

DRUGS (4)
  1. ABILIFY [Suspect]
     Indication: BIPOLAR DISORDER
     Route: 048
     Dates: start: 20040116
  2. ZYPREXA [Concomitant]
  3. LITHIUM [Concomitant]
  4. DEPAKOTE [Concomitant]

REACTIONS (2)
  - HALLUCINATION [None]
  - PARANOIA [None]
